FAERS Safety Report 7403354-7 (Version None)
Quarter: 2011Q2

REPORT INFORMATION
  Report Type: 
  Country: None (occurrence: None)
  Receive Date: 20110408
  Receipt Date: 20110330
  Transmission Date: 20111010
  Serious: Yes (Hospitalization)
  Sender: FDA-Public Use
  Company Number: A0848990A

PATIENT
  Sex: Female
  Weight: 86.4 kg

DRUGS (1)
  1. AVANDIA [Suspect]
     Indication: DIABETES MELLITUS
     Route: 048
     Dates: start: 20030717, end: 20060821

REACTIONS (22)
  - HAEMATOCRIT DECREASED [None]
  - MITRAL VALVE INCOMPETENCE [None]
  - HYPOXIA [None]
  - BLOOD DISORDER [None]
  - BLOOD GLUCOSE DECREASED [None]
  - GASTROINTESTINAL HAEMORRHAGE [None]
  - PLEURAL EFFUSION [None]
  - CARDIAC FAILURE CONGESTIVE [None]
  - AORTIC VALVE SCLEROSIS [None]
  - RENAL FAILURE CHRONIC [None]
  - CORONARY ARTERY OCCLUSION [None]
  - WEIGHT INCREASED [None]
  - PULMONARY OEDEMA [None]
  - NON-HODGKIN'S LYMPHOMA [None]
  - DYSPNOEA [None]
  - TRICUSPID VALVE INCOMPETENCE [None]
  - SLEEP APNOEA SYNDROME [None]
  - HIATUS HERNIA [None]
  - LEFT ATRIAL DILATATION [None]
  - PULMONARY HYPERTENSION [None]
  - ANAEMIA [None]
  - LOSS OF CONSCIOUSNESS [None]
